FAERS Safety Report 13314554 (Version 1)
Quarter: 2017Q1

REPORT INFORMATION
  Report Type: Report from Study
  Country: MX (occurrence: MX)
  Receive Date: 20170309
  Receipt Date: 20170309
  Transmission Date: 20170428
  Serious: Yes (Other)
  Sender: FDA-Public Use
  Company Number: PHHY2017MX036381

PATIENT
  Sex: Female

DRUGS (2)
  1. CO-DIOVAN [Suspect]
     Active Substance: HYDROCHLOROTHIAZIDE\VALSARTAN
     Indication: DYSPNOEA
     Dosage: 1 DF (VALSARTAN 320 MG, HYDROCHLOROTHIAZIDE 25 MG), QD
     Route: 065
  2. CO-DIOVAN [Suspect]
     Active Substance: HYDROCHLOROTHIAZIDE\VALSARTAN
     Indication: CEREBRAL DISORDER

REACTIONS (7)
  - Dyspnoea [Unknown]
  - Product use issue [Not Recovered/Not Resolved]
  - Malaise [Unknown]
  - Head discomfort [Unknown]
  - Loss of consciousness [Unknown]
  - Hypoacusis [Unknown]
  - Drug prescribing error [Not Recovered/Not Resolved]
